FAERS Safety Report 15266925 (Version 2)
Quarter: 2018Q3

REPORT INFORMATION
  Report Type: Spontaneous
  Country: US (occurrence: US)
  Receive Date: 20180810
  Receipt Date: 20180815
  Transmission Date: 20181010
  Serious: No
  Sender: FDA-Public Use
  Company Number: US-BIOGEN-2018BI00619199

PATIENT
  Age: 37 Year
  Sex: Male

DRUGS (1)
  1. TYSABRI [Suspect]
     Active Substance: NATALIZUMAB
     Indication: MULTIPLE SCLEROSIS
     Route: 042
     Dates: start: 20180601

REACTIONS (5)
  - Sinusitis [Not Recovered/Not Resolved]
  - Ear infection [Not Recovered/Not Resolved]
  - Dyspnoea [Unknown]
  - Chronic obstructive pulmonary disease [Unknown]
  - Upper respiratory tract infection [Not Recovered/Not Resolved]

NARRATIVE: CASE EVENT DATE: 20180725
